FAERS Safety Report 8124668-1 (Version None)
Quarter: 2012Q1

REPORT INFORMATION
  Report Type: 
  Country: None (occurrence: None)
  Receive Date: 20120209
  Receipt Date: 20120209
  Transmission Date: 20120608
  Serious: Yes (Life-Threatening)
  Sender: FDA-Public Use
  Company Number: None

PATIENT
  Age: 17 Year
  Sex: Male
  Weight: 55.1 kg

DRUGS (7)
  1. SYNTHROID [Concomitant]
  2. SAIZEN [Suspect]
     Indication: RADIOTHERAPY TO BRAIN
     Dosage: 2.2 MG
     Route: 058
     Dates: start: 20051207, end: 20110411
  3. SAIZEN [Suspect]
     Indication: HYPOPITUITARISM
     Dosage: 2.2 MG
     Route: 058
     Dates: start: 20051207, end: 20110411
  4. GLEEVEC [Concomitant]
  5. CORTEF [Concomitant]
  6. ONDANSETRON HCL [Concomitant]
  7. CORTEF [Concomitant]

REACTIONS (1)
  - ANAPLASTIC ASTROCYTOMA [None]
